FAERS Safety Report 24201282 (Version 1)
Quarter: 2024Q3

REPORT INFORMATION
  Report Type: Spontaneous
  Country: BR (occurrence: BR)
  Receive Date: 20240812
  Receipt Date: 20240812
  Transmission Date: 20241017
  Serious: Yes (Other)
  Sender: INVENTIA HEALTHCARE
  Company Number: BR-Inventia-000738

PATIENT
  Age: 83 Year
  Sex: Female
  Weight: 69 kg

DRUGS (7)
  1. DULOXETINE [Suspect]
     Active Substance: DULOXETINE
     Indication: Adjustment disorder with depressed mood
     Dosage: 30 TO 60 MG/D
  2. TELMISARTAN [Concomitant]
     Active Substance: TELMISARTAN
     Indication: Product used for unknown indication
  3. APIXABAN [Concomitant]
     Active Substance: APIXABAN
     Indication: Product used for unknown indication
  4. LEVOTHYROXINE [Concomitant]
     Active Substance: LEVOTHYROXINE\LEVOTHYROXINE SODIUM
     Indication: Product used for unknown indication
  5. ROSUVASTATIN [Concomitant]
     Active Substance: ROSUVASTATIN\ROSUVASTATIN CALCIUM
     Indication: Product used for unknown indication
  6. DENOSUMAB [Concomitant]
     Active Substance: DENOSUMAB
     Indication: Product used for unknown indication
  7. DAPAGLIFLOZIN [Concomitant]
     Active Substance: DAPAGLIFLOZIN
     Indication: Product used for unknown indication

REACTIONS (7)
  - Bruxism [Recovered/Resolved]
  - Tardive dyskinesia [Recovering/Resolving]
  - Aspiration [Unknown]
  - Pneumonia [Unknown]
  - Dysphagia [Recovering/Resolving]
  - Weight decreased [Recovering/Resolving]
  - Toxicity to various agents [Unknown]
